FAERS Safety Report 7042754-4 (Version None)
Quarter: 2010Q4

REPORT INFORMATION
  Report Type: 
  Country: None (occurrence: None)
  Receive Date: 20101013
  Receipt Date: 20100519
  Transmission Date: 20110411
  Serious: No
  Sender: FDA-Public Use
  Company Number: US-ASTRAZENECA-2010SE22918

PATIENT
  Age: 76 Year
  Sex: Female
  Weight: 56.7 kg

DRUGS (6)
  1. SYMBICORT [Suspect]
     Indication: COUGH
     Dosage: 160 MICROGRAM
     Route: 055
     Dates: start: 20100101
  2. CALCIUM [Concomitant]
  3. MEDICATIONS FOR THYROID [Concomitant]
  4. BLOOD PRESSURE MEDICATIONS [Concomitant]
  5. CHOLESTEROL MEDICATIONS [Concomitant]
  6. OSTEOPOROSIS MEDICATIONS [Concomitant]

REACTIONS (2)
  - DYSPHONIA [None]
  - SUBDURAL HAEMATOMA [None]
